FAERS Safety Report 11194115 (Version 1)
Quarter: 2015Q2

REPORT INFORMATION
  Report Type: Spontaneous
  Country: DE (occurrence: DE)
  Receive Date: 20150616
  Receipt Date: 20150616
  Transmission Date: 20150821
  Serious: Yes (Hospitalization)
  Sender: FDA-Public Use
  Company Number: DE-MYLANLABS-2015M1018802

PATIENT

DRUGS (2)
  1. MTX-DURA 7.5 MG/ML INJEKTIONSL?SUNG [Suspect]
     Active Substance: METHOTREXATE SODIUM
     Indication: PRODUCT USED FOR UNKNOWN INDICATION
     Dosage: 7.5 MG/ML, ONCE 7.5  MG
     Route: 058
     Dates: start: 20150528, end: 20150528
  2. FOLIC ACID. [Concomitant]
     Active Substance: FOLIC ACID
     Indication: PRODUCT USED FOR UNKNOWN INDICATION
     Dosage: 5 MG, UNK
     Route: 065
     Dates: start: 20150529

REACTIONS (2)
  - Erythema [Unknown]
  - Papule [Unknown]
